FAERS Safety Report 9455920 (Version 1)
Quarter: 2013Q3

REPORT INFORMATION
  Report Type: Spontaneous
  Country: US (occurrence: US)
  Receive Date: 20130813
  Receipt Date: 20130813
  Transmission Date: 20140515
  Serious: No
  Sender: FDA-Public Use
  Company Number: US-BAYER-2013-096295

PATIENT
  Age: 83 Year
  Sex: Male
  Weight: 83.9 kg

DRUGS (4)
  1. ALEVE TABLET [Suspect]
     Indication: BACK PAIN
     Dosage: 2 DF PRN
     Route: 048
     Dates: start: 2007, end: 20130731
  2. ASPIRIN [Concomitant]
     Dosage: 81 MG, UNK
  3. LIPITOR [Concomitant]
  4. LEVOTHYROXINE [Concomitant]

REACTIONS (5)
  - Heart rate increased [Recovered/Resolved]
  - Pruritus [Recovered/Resolved]
  - Urticaria [Recovered/Resolved]
  - Contusion [Recovered/Resolved]
  - Ear discomfort [Recovered/Resolved]
